FAERS Safety Report 6432128-9 (Version None)
Quarter: 2009Q4

REPORT INFORMATION
  Report Type: 
  Country: None (occurrence: None)
  Receive Date: 20091105
  Receipt Date: 20090709
  Transmission Date: 20100525
  Serious: Yes (Hospitalization, Other)
  Sender: FDA-Public Use
  Company Number: 220004N09FRA

PATIENT
  Age: 36 Year
  Sex: Male
  Weight: 82 kg

DRUGS (11)
  1. SAIZEN [Suspect]
     Indication: GROWTH HORMONE DEFICIENCY
     Dosage: 0.3 MG, 7 IN 1 WEEKS, SUBCUTANEOUS
     Route: 058
     Dates: start: 20050520
  2. HYDROCORTISONE (HYDROCORTISONE /00028601/) [Concomitant]
  3. FLUDROCORTISONE ACETATE [Concomitant]
  4. LEVOTHYROXISO (LEVOTHYROXINE /00068001/) [Concomitant]
  5. MINIRIN [Concomitant]
  6. ALLOPURINOL [Concomitant]
  7. LAMICTAL [Concomitant]
  8. PROZAC [Concomitant]
  9. ANDROTARDYL (TESTOSTERONE ENANTATE) [Concomitant]
  10. DEPAKENE [Concomitant]
  11. VASTAREL (TRIMETAZIDINE HYDROCHLORIDE) [Concomitant]

REACTIONS (2)
  - HAEMORRHAGE [None]
  - PILONIDAL CYST [None]
